FAERS Safety Report 6532110-7 (Version None)
Quarter: 2010Q1

REPORT INFORMATION
  Report Type: 
  Country: None (occurrence: None)
  Receive Date: 20100108
  Receipt Date: 20091230
  Transmission Date: 20100710
  Serious: Yes (Other)
  Sender: FDA-Public Use
  Company Number: US-JNJFOC-20090908766

PATIENT
  Age: 5 Year
  Sex: Female
  Weight: 19.96 kg

DRUGS (2)
  1. TYLENOL (CAPLET) [Suspect]
     Indication: RHINORRHOEA
     Route: 048
  2. TYLENOL (CAPLET) [Suspect]
     Indication: COUGH
     Route: 048

REACTIONS (2)
  - CONVULSION [None]
  - TRANSMISSION OF AN INFECTIOUS AGENT VIA A MEDICINAL PRODUCT [None]
